FAERS Safety Report 22087592 (Version 1)
Quarter: 2023Q1

REPORT INFORMATION
  Report Type: Spontaneous
  Country: US (occurrence: US)
  Receive Date: 20230313
  Receipt Date: 20230313
  Transmission Date: 20230418
  Serious: Yes (Hospitalization, Other)
  Sender: FDA-Public Use
  Company Number: US-BRISTOL-MYERS SQUIBB COMPANY-2023-034883

PATIENT
  Age: 46 Year
  Sex: Male

DRUGS (1)
  1. LENALIDOMIDE [Suspect]
     Active Substance: LENALIDOMIDE
     Indication: Plasmacytoma
     Dosage: DAYS ONE THROUGH 21 OF THE CYCLE WAS ADDED TO THE REGIMEN FOR CYCLE 2
     Route: 048

REACTIONS (2)
  - Drug-induced liver injury [Unknown]
  - Off label use [Unknown]
